FAERS Safety Report 14012551 (Version 1)
Quarter: 2017Q3

REPORT INFORMATION
  Report Type: Spontaneous
  Country: US (occurrence: US)
  Receive Date: 20170926
  Receipt Date: 20170926
  Transmission Date: 20171128
  Serious: No
  Sender: FDA-Public Use
  Company Number: US-MISSION PHARMACAL COMPANY-2027739

PATIENT
  Age: 26 Year
  Sex: Female

DRUGS (5)
  1. ZOFRAN [Concomitant]
     Active Substance: ONDANSETRON HYDROCHLORIDE
     Route: 065
  2. THIOLA [Suspect]
     Active Substance: TIOPRONIN
     Indication: URETEROLITHIASIS
     Route: 065
     Dates: start: 20140823
  3. MUSCLE RELAXER [Concomitant]
     Active Substance: UNSPECIFIED INGREDIENT
     Route: 065
  4. FLOMAX [Concomitant]
     Active Substance: TAMSULOSIN HYDROCHLORIDE
     Route: 065
  5. TRAMADOL. [Concomitant]
     Active Substance: TRAMADOL
     Route: 065

REACTIONS (10)
  - Pyrexia [Unknown]
  - Drug dose omission [Unknown]
  - Muscle spasms [Unknown]
  - Cyst [Recovering/Resolving]
  - Oedematous kidney [Unknown]
  - Somnolence [Unknown]
  - Drug ineffective [Unknown]
  - Gastric ulcer [Unknown]
  - Heart rate increased [Unknown]
  - Vomiting [Unknown]
